FAERS Safety Report 10411327 (Version 1)
Quarter: 2014Q3

REPORT INFORMATION
  Report Type: Report from Study
  Country: ZA (occurrence: ZA)
  Receive Date: 20140826
  Receipt Date: 20140826
  Transmission Date: 20150326
  Serious: Yes (Hospitalization, Other)
  Sender: FDA-Public Use
  Company Number: ZA-BAYER-2014-065051

PATIENT
  Sex: Female

DRUGS (1)
  1. BETAFERON [Suspect]
     Active Substance: INTERFERON BETA-1B

REACTIONS (31)
  - Multiple sclerosis relapse [None]
  - Subcutaneous abscess [Recovered/Resolved]
  - Procedural pain [Not Recovered/Not Resolved]
  - Gait disturbance [Not Recovered/Not Resolved]
  - Optic neuritis [Recovered/Resolved]
  - Nephrolithiasis [Recovered/Resolved]
  - Balance disorder [None]
  - Back pain [Recovered/Resolved]
  - Musculoskeletal stiffness [None]
  - Enuresis [Not Recovered/Not Resolved]
  - Multiple sclerosis relapse [None]
  - Musculoskeletal stiffness [None]
  - Muscular weakness [None]
  - Multiple sclerosis relapse [Not Recovered/Not Resolved]
  - Balance disorder [Not Recovered/Not Resolved]
  - Multiple sclerosis relapse [None]
  - Muscular weakness [None]
  - Stress [None]
  - Injection site rash [None]
  - Visual impairment [None]
  - Malaise [None]
  - Gait disturbance [Not Recovered/Not Resolved]
  - Multiple sclerosis [Not Recovered/Not Resolved]
  - Peripheral swelling [None]
  - Muscular weakness [None]
  - Muscular weakness [Not Recovered/Not Resolved]
  - Emotional distress [None]
  - Multiple sclerosis [None]
  - Limb discomfort [None]
  - Multiple sclerosis [Not Recovered/Not Resolved]
  - Balance disorder [Not Recovered/Not Resolved]

NARRATIVE: CASE EVENT DATE: 2007
